FAERS Safety Report 6345060-6 (Version None)
Quarter: 2009Q3

REPORT INFORMATION
  Report Type: 
  Country: None (occurrence: None)
  Receive Date: 20090909
  Receipt Date: 20070614
  Transmission Date: 20100115
  Serious: Yes (Other)
  Sender: FDA-Public Use
  Company Number: US-ASTRAZENECA-2006UW23619

PATIENT
  Age: 598 Month
  Sex: Male
  Weight: 105.2 kg

DRUGS (7)
  1. SEROQUEL [Suspect]
     Indication: SCHIZOPHRENIA
     Route: 048
     Dates: start: 20050801, end: 20060201
  2. SEROQUEL [Suspect]
     Dosage: STRENGTH- 25MG, 100MG, 200MG  DOSE-25MG-300MG
     Route: 048
     Dates: start: 20050831
  3. ABILIFY [Concomitant]
  4. PROTONIX [Concomitant]
     Route: 048
     Dates: start: 20050928
  5. OXYCODONE [Concomitant]
     Indication: PAIN
     Dosage: 5-15MG EVERY FOUR HOURS AS NEEDED
     Dates: start: 20050928
  6. PRILOSEC [Concomitant]
     Dates: start: 20050917
  7. VALPROIC ACID [Concomitant]
     Indication: HEADACHE
     Dates: start: 20070514

REACTIONS (4)
  - DEPRESSION [None]
  - DIABETES MELLITUS [None]
  - OESOPHAGEAL VARICES HAEMORRHAGE [None]
  - TYPE 2 DIABETES MELLITUS [None]
